FAERS Safety Report 7729962-1 (Version None)
Quarter: 2011Q3

REPORT INFORMATION
  Report Type: 
  Country: None (occurrence: None)
  Receive Date: 20110906
  Receipt Date: 20110904
  Transmission Date: 20111222
  Serious: Yes (Other)
  Sender: FDA-Public Use
  Company Number: US-PFIZER INC-2011206584

PATIENT
  Sex: Female
  Weight: 56.689 kg

DRUGS (2)
  1. CHANTIX [Suspect]
     Indication: SMOKING CESSATION THERAPY
     Dosage: 0.5 MG, 1X/DAY
     Route: 048
     Dates: start: 20110829, end: 20110903
  2. ZOLOFT [Concomitant]
     Dosage: UNK

REACTIONS (5)
  - FATIGUE [None]
  - FALL [None]
  - LACERATION [None]
  - FACIAL BONES FRACTURE [None]
  - DIZZINESS [None]
